FAERS Safety Report 7741665-6 (Version None)
Quarter: 2011Q3

REPORT INFORMATION
  Report Type: 
  Country: None (occurrence: None)
  Receive Date: 20110912
  Receipt Date: 20110906
  Transmission Date: 20111222
  Serious: Yes (Hospitalization, Disabling)
  Sender: FDA-Public Use
  Company Number: JP-BRISTOL-MYERS SQUIBB COMPANY-16040776

PATIENT
  Age: 61 Year
  Sex: Male

DRUGS (2)
  1. PACLITAXEL [Suspect]
     Indication: GASTRIC CANCER
  2. LAPATINIB [Suspect]
     Indication: GASTRIC CANCER

REACTIONS (2)
  - HAND FRACTURE [None]
  - EMBOLISM [None]
